FAERS Safety Report 12294750 (Version 6)
Quarter: 2017Q1

REPORT INFORMATION
  Report Type: Spontaneous
  Country: US (occurrence: US)
  Receive Date: 20160422
  Receipt Date: 20170323
  Transmission Date: 20170428
  Serious: Yes (Congenital Anomaly, Other)
  Sender: FDA-Public Use
  Company Number: PHEH2016US009641

PATIENT
  Sex: Female

DRUGS (2)
  1. ZOFRAN [Suspect]
     Active Substance: ONDANSETRON HYDROCHLORIDE
     Indication: FOETAL EXPOSURE DURING PREGNANCY
     Route: 064
  2. ZOFRAN ODT [Suspect]
     Active Substance: ONDANSETRON HYDROCHLORIDE
     Indication: FOETAL EXPOSURE DURING PREGNANCY
     Dosage: MOTHER^S DOSE: 8 MG, Q8H
     Route: 064

REACTIONS (31)
  - Heart disease congenital [Unknown]
  - Oral candidiasis [Unknown]
  - Melaena [Unknown]
  - Faeces discoloured [Unknown]
  - Viral infection [Unknown]
  - Anxiety [Unknown]
  - Persistent left superior vena cava [Unknown]
  - Foetal exposure during pregnancy [Unknown]
  - Rhinorrhoea [Unknown]
  - Ventricular septal defect [Unknown]
  - Neonatal tachypnoea [Unknown]
  - Diarrhoea neonatal [Unknown]
  - Dehydration [Unknown]
  - Fever neonatal [Unknown]
  - Injury [Unknown]
  - Anhedonia [Unknown]
  - Nasal congestion [Unknown]
  - Asthma [Unknown]
  - Congenital anomaly [Unknown]
  - Atrial septal defect [Unknown]
  - Right aortic arch [Unknown]
  - Neonatal pneumonia [Unknown]
  - DiGeorge^s syndrome [Unknown]
  - Vascular malformation [Unknown]
  - Pulmonary artery stenosis [Unknown]
  - Bronchiolitis [Unknown]
  - Pain [Unknown]
  - Gastrooesophageal reflux disease [Unknown]
  - Speech disorder [Unknown]
  - Urinary tract infection [Unknown]
  - Dyspnoea [Unknown]
